FAERS Safety Report 8373018-4 (Version None)
Quarter: 2012Q2

REPORT INFORMATION
  Report Type: 
  Country: None (occurrence: None)
  Receive Date: 20120521
  Receipt Date: 20110504
  Transmission Date: 20120825
  Serious: No
  Sender: FDA-Public Use
  Company Number: US-ASTRAZENECA-2011SE27189

PATIENT
  Sex: Male

DRUGS (3)
  1. PRILOSEC OTC [Suspect]
     Route: 048
     Dates: start: 20101219
  2. THYROID THERAPY [Concomitant]
     Dosage: UNKNOWN
  3. ANTIHYPERTENSIVES [Concomitant]
     Dosage: UNKNOWN

REACTIONS (1)
  - IRON DEFICIENCY [None]
